FAERS Safety Report 14317217 (Version 1)
Quarter: 2017Q4

REPORT INFORMATION
  Report Type: Report from Study
  Country: US (occurrence: US)
  Receive Date: 20171222
  Receipt Date: 20171222
  Transmission Date: 20180321
  Serious: Yes (Death, Hospitalization)
  Sender: FDA-Public Use
  Company Number: US-ROCHE-2043125

PATIENT
  Age: 63 Year
  Sex: Male

DRUGS (3)
  1. COBIMETINIB. [Suspect]
     Active Substance: COBIMETINIB
     Indication: METASTATIC MALIGNANT MELANOMA
     Dosage: DATE MOST RECENT DOSE OF COBIMETINIB PRIOR TO THE ADVERSE EVENT: 12/NOV/2017
     Route: 065
     Dates: start: 20170821
  2. XL888 (HSP90 INHIBITOR) [Suspect]
     Active Substance: INVESTIGATIONAL PRODUCT
     Indication: METASTATIC MALIGNANT MELANOMA
     Dosage: DATE MOST RECENT DOSE OF XL888 (HSP90 INHIBITOR) PRIOR TO THE ADVERSE EVENT: 12/NOV/2017
     Route: 065
     Dates: start: 20170821, end: 20171112
  3. VEMURAFENIB. [Suspect]
     Active Substance: VEMURAFENIB
     Indication: METASTATIC MALIGNANT MELANOMA
     Dosage: DATE MOST RECENT DOSE OF VEMURAFENIB PRIOR TO THE ADVERSE EVENT: 12/NOV/2017
     Route: 065
     Dates: start: 20170821

REACTIONS (3)
  - Hallucination [Unknown]
  - Neoplasm [Fatal]
  - Atrial fibrillation [Unknown]

NARRATIVE: CASE EVENT DATE: 20171112
